FAERS Safety Report 11177046 (Version 3)
Quarter: 2015Q4

REPORT INFORMATION
  Report Type: Report from Study
  Country: US (occurrence: US)
  Receive Date: 20150610
  Receipt Date: 20151229
  Transmission Date: 20160304
  Serious: Yes (Other)
  Sender: FDA-Public Use
  Company Number: US-JNJFOC-20150603949

PATIENT
  Sex: Female

DRUGS (1)
  1. REMICADE [Suspect]
     Active Substance: INFLIXIMAB
     Indication: PSORIATIC ARTHROPATHY
     Dosage: 7-8 YEARS AGO
     Route: 042

REACTIONS (4)
  - Drug effect decreased [Unknown]
  - Synovectomy [Unknown]
  - Limb operation [Unknown]
  - Drug ineffective [Unknown]
